FAERS Safety Report 8920631 (Version 2)
Quarter: 2012Q4

REPORT INFORMATION
  Report Type: 
  Country: US (occurrence: US)
  Receive Date: 20121122
  Receipt Date: 20121203
  Transmission Date: 20130627
  Serious: Yes (Disabling, Other)
  Sender: FDA-Public Use
  Company Number: CHPA2012US023782

PATIENT
  Age: 74 Year
  Sex: Female

DRUGS (1)
  1. PREVACID 24HR 15MG [Suspect]
     Indication: GASTROOESOPHAGEAL REFLUX DISEASE
     Dosage: 15 mg, QD
     Route: 048
     Dates: end: 20121114

REACTIONS (8)
  - Nephrolithiasis [Recovered/Resolved]
  - Activities of daily living impaired [Recovered/Resolved]
  - Malaise [Recovered/Resolved]
  - Blood urine present [Recovered/Resolved]
  - Asthenia [None]
  - Off label use [Unknown]
  - Therapeutic response unexpected [Unknown]
  - Incorrect drug administration duration [Unknown]
